FAERS Safety Report 10391915 (Version 2)
Quarter: 2014Q3

REPORT INFORMATION
  Report Type: Spontaneous
  Country: JP (occurrence: JP)
  Receive Date: 20140819
  Receipt Date: 20140819
  Transmission Date: 20150326
  Serious: Yes (Death, Hospitalization)
  Sender: FDA-Public Use
  Company Number: PHHY2014JP010734

PATIENT
  Age: 43 Year
  Sex: Female

DRUGS (2)
  1. SLOW K [Suspect]
     Active Substance: POTASSIUM CHLORIDE
     Indication: COMPLETED SUICIDE
     Dosage: 24000 MG, UNK
     Route: 048
  2. PREDNISOLONE. [Concomitant]
     Active Substance: PREDNISOLONE
     Route: 048

REACTIONS (8)
  - Hyperkalaemia [Recovering/Resolving]
  - Completed suicide [Fatal]
  - Cardiac arrest [Recovering/Resolving]
  - Ventricular tachycardia [Recovering/Resolving]
  - Postresuscitation encephalopathy [Fatal]
  - Pulseless electrical activity [Recovering/Resolving]
  - Renal impairment [Recovering/Resolving]
  - Intentional overdose [Fatal]
